FAERS Safety Report 10735236 (Version 3)
Quarter: 2015Q2

REPORT INFORMATION
  Report Type: Spontaneous
  Country: CA (occurrence: CA)
  Receive Date: 20150125
  Receipt Date: 20150424
  Transmission Date: 20150821
  Serious: Yes (Other)
  Sender: FDA-Public Use
  Company Number: CA-APOTEX-2015AP005366

PATIENT
  Age: 11 Year
  Sex: Male
  Weight: 56 kg

DRUGS (2)
  1. APO-DESMOPRESSIN [Suspect]
     Active Substance: DESMOPRESSIN
     Dosage: 300MCG Q.AM AND 500MCG Q.PM
  2. APO-DESMOPRESSIN [Suspect]
     Active Substance: DESMOPRESSIN
     Indication: DIABETES INSIPIDUS
     Dosage: 200 MCG Q.AM AND 400 MCG Q.PM
     Route: 048
     Dates: start: 20141109

REACTIONS (5)
  - Drug ineffective [Recovered/Resolved]
  - Fatigue [Recovered/Resolved]
  - Product substitution issue [Recovered/Resolved]
  - Urine output increased [Recovered/Resolved]
  - Hyponatraemia [Recovered/Resolved]

NARRATIVE: CASE EVENT DATE: 20141110
